FAERS Safety Report 26099984 (Version 1)
Quarter: 2025Q4

REPORT INFORMATION
  Report Type: Spontaneous
  Country: JP (occurrence: JP)
  Receive Date: 20251128
  Receipt Date: 20251128
  Transmission Date: 20260118
  Serious: Yes (Other)
  Sender: MERCK SHARP & DOHME LLC
  Company Number: JP-009507513-2292265

PATIENT
  Age: 64 Year
  Sex: Male

DRUGS (3)
  1. PEMBROLIZUMAB [Suspect]
     Active Substance: PEMBROLIZUMAB
     Indication: Metastatic renal cell carcinoma
     Dosage: 200 MG, Q3W
  2. LENVATINIB MESYLATE [Suspect]
     Active Substance: LENVATINIB MESYLATE
     Indication: Metastatic renal cell carcinoma
     Dosage: 20 MG, QD
     Route: 048
  3. LENVATINIB MESYLATE [Suspect]
     Active Substance: LENVATINIB MESYLATE
     Indication: Metastatic renal cell carcinoma
     Dosage: 10 MG, QD
     Route: 048

REACTIONS (10)
  - Nephrectomy [Unknown]
  - Malignant neoplasm progression [Unknown]
  - Hypothyroidism [Unknown]
  - Hypertension [Unknown]
  - Dysphonia [Unknown]
  - Malaise [Unknown]
  - Diarrhoea [Unknown]
  - Palmar-plantar erythrodysaesthesia syndrome [Unknown]
  - Therapy partial responder [Unknown]
  - Radiotherapy [Unknown]
